FAERS Safety Report 8889394 (Version 1)
Quarter: 2012Q4

REPORT INFORMATION
  Report Type: Spontaneous
  Country: US (occurrence: None)
  Receive Date: 20121102
  Receipt Date: 20121102
  Transmission Date: 20130627
  Serious: Yes (Life-Threatening, Hospitalization, Disabling, Other)
  Sender: FDA-Public Use
  Company Number: None

PATIENT
  Age: 40 Year
  Sex: Female
  Weight: 43.77 kg

DRUGS (3)
  1. LOESTRIN FE [Suspect]
     Indication: CONTRACEPTION
     Dates: start: 20110418, end: 20121021
  2. LOESTRIN FE [Suspect]
     Indication: PREMENSTRUAL SYNDROME
     Dates: start: 20110418, end: 20121021
  3. LOESTRIN FE [Suspect]
     Indication: MENSTRUAL CYCLE MANAGEMENT
     Dates: start: 20110418, end: 20121021

REACTIONS (3)
  - Embolic stroke [None]
  - Pneumonia [None]
  - Unresponsive to stimuli [None]
